FAERS Safety Report 8450646-9 (Version None)
Quarter: 2012Q2

REPORT INFORMATION
  Report Type: 
  Country: None (occurrence: None)
  Receive Date: 20120620
  Receipt Date: 20120618
  Transmission Date: 20120825
  Serious: Yes (Death, Life-Threatening, Hospitalization)
  Sender: FDA-Public Use
  Company Number: PHEH2011US009639

PATIENT
  Sex: Male
  Weight: 85.261 kg

DRUGS (17)
  1. EXJADE [Suspect]
     Indication: IRON METABOLISM DISORDER
     Dosage: 500 MG, BID
     Route: 048
     Dates: start: 20110810, end: 20111110
  2. MUCINEX [Concomitant]
     Dosage: 600 UKN, BID
  3. SIMVASTATIN [Concomitant]
     Dosage: 40 MG, DAILY
  4. COREG [Concomitant]
     Dosage: 3.125 MG, BID
  5. PROTONIX [Concomitant]
     Dosage: 40 MG, UNK
  6. PULMICORT [Concomitant]
  7. EXJADE [Suspect]
     Indication: CHELATION THERAPY
  8. ALBUTEROL [Concomitant]
  9. EXJADE [Suspect]
     Indication: IRON OVERLOAD
     Dosage: 500 MG, UNK
     Route: 048
     Dates: start: 20100208
  10. INSULIN [Concomitant]
  11. ASPIRIN [Concomitant]
     Dosage: 325 MG, UNK
  12. PLAVIX [Concomitant]
     Dosage: 75 MG, DAILY
  13. NEURONTIN [Concomitant]
     Dosage: 800 UKN, TID
  14. FLONAX [Concomitant]
  15. PROCARDIA [Concomitant]
  16. MEGACE [Concomitant]
     Dosage: 200 UKN, BID
  17. MIRALAX [Concomitant]

REACTIONS (11)
  - ACUTE MYOCARDIAL INFARCTION [None]
  - CONFUSIONAL STATE [None]
  - FATIGUE [None]
  - ASTHENIA [None]
  - HAEMATOCRIT DECREASED [None]
  - PRODUCTIVE COUGH [None]
  - HYPERTENSION [None]
  - LETHARGY [None]
  - CARDIAC FAILURE CONGESTIVE [None]
  - HYPOTENSION [None]
  - PYREXIA [None]
